FAERS Safety Report 4404134-7 (Version None)
Quarter: 2004Q3

REPORT INFORMATION
  Report Type: 
  Country: None (occurrence: None)
  Receive Date: 20040719
  Receipt Date: 20040712
  Transmission Date: 20050211
  Serious: Yes (Life-Threatening, Hospitalization)
  Sender: FDA-Public Use
  Company Number: 237823

PATIENT
  Age: 54 Year
  Sex: Male
  Weight: 47 kg

DRUGS (4)
  1. NOVORAPID CHU FLEXPEN (INSULIN ASPART) SOLUTION FOR INJECTION, 100 U/M [Suspect]
     Indication: INSULIN-REQUIRING TYPE II DIABETES MELLITUS
     Dosage: 18 IU, QD, SUBCUTANEOUS
     Route: 058
     Dates: start: 20040609, end: 20040622
  2. ROVORAPID 30 MIX CHU PENFILL (INSULIN ASPART) SUSPENSION FOR INJECTION [Suspect]
     Indication: INSULIN-REQUIRING TYPE II DIABETES MELLITUS
     Dosage: 10 IU, QD, SUBCUTANEOUS
     Route: 058
     Dates: start: 20040609, end: 20040622
  3. PRAVASTATIN SODIUM [Concomitant]
  4. ALLOPURINOL [Concomitant]

REACTIONS (1)
  - HEPATITIS ACUTE [None]
